FAERS Safety Report 23192687 (Version 2)
Quarter: 2024Q1

REPORT INFORMATION
  Report Type: Spontaneous
  Country: US (occurrence: US)
  Receive Date: 20231116
  Receipt Date: 20240105
  Transmission Date: 20240410
  Serious: No
  Sender: FDA-Public Use
  Company Number: US-SA-SAC20231114000849

PATIENT
  Sex: Female
  Weight: 70.7 kg

DRUGS (28)
  1. DUPIXENT [Suspect]
     Active Substance: DUPILUMAB
     Indication: Asthma
     Dosage: 300MG, EVERY 2 WEEKS
     Route: 058
  2. CUVITRU [Suspect]
     Active Substance: HUMAN IMMUNOGLOBULIN G
     Dosage: 8 G/40 ML VIAL
  3. METOPROLOL SUCCINATE [Concomitant]
     Active Substance: METOPROLOL SUCCINATE
     Dosage: UNK, QD
  4. IBANDRONATE SODIUM [Concomitant]
     Active Substance: IBANDRONATE SODIUM
  5. TOBI [Concomitant]
     Active Substance: TOBRAMYCIN
  6. ALBUTEROL SULFATE [Concomitant]
     Active Substance: ALBUTEROL SULFATE
  7. BACTRIM [Concomitant]
     Active Substance: SULFAMETHOXAZOLE\TRIMETHOPRIM
  8. AZELASTINE HYDROCHLORIDE [Concomitant]
     Active Substance: AZELASTINE HYDROCHLORIDE
  9. CYMBALTA [Concomitant]
     Active Substance: DULOXETINE HYDROCHLORIDE
  10. ELIQUIS [Concomitant]
     Active Substance: APIXABAN
  11. GABAPENTIN [Concomitant]
     Active Substance: GABAPENTIN
  12. TOPIRAMATE [Concomitant]
     Active Substance: TOPIRAMATE
  13. TRELEGY ELLIPTA [Concomitant]
     Active Substance: FLUTICASONE FUROATE\UMECLIDINIUM BROMIDE\VILANTEROL TRIFENATATE
     Dosage: 200-62.5 BLST W/DEV
  14. PREDNISONE [Concomitant]
     Active Substance: PREDNISONE
  15. CORLANOR [Concomitant]
     Active Substance: IVABRADINE HYDROCHLORIDE
  16. PLAQUENIL [Concomitant]
     Active Substance: HYDROXYCHLOROQUINE SULFATE
     Dosage: UNK, QD
  17. FISH OIL [Concomitant]
     Active Substance: FISH OIL
  18. VITAMIN D3 [Concomitant]
     Active Substance: CHOLECALCIFEROL
  19. PULMOZYME [Concomitant]
     Active Substance: DORNASE ALFA
  20. CHONDROITIN;GLUCOSAMINE [Concomitant]
  21. ENTRESTO [Concomitant]
     Active Substance: SACUBITRIL\VALSARTAN
  22. LEVOFLOXACIN [Concomitant]
     Active Substance: LEVOFLOXACIN
  23. MUCINEX [Concomitant]
     Active Substance: GUAIFENESIN
     Dosage: ER 12H, Q12H
  24. MAXALT [Concomitant]
     Active Substance: RIZATRIPTAN BENZOATE
  25. THEO [THEOPHYLLINE] [Concomitant]
     Dosage: UNK, QD
  26. ETHAMBUTOL HYDROCHLORIDE [Concomitant]
     Active Substance: ETHAMBUTOL HYDROCHLORIDE
  27. RIFAMPIN [Concomitant]
     Active Substance: RIFAMPIN
  28. AZITHROMYCIN [Concomitant]
     Active Substance: AZITHROMYCIN

REACTIONS (1)
  - Bacterial infection [Not Recovered/Not Resolved]
